FAERS Safety Report 24718432 (Version 3)
Quarter: 2025Q1

REPORT INFORMATION
  Report Type: Spontaneous
  Country: US (occurrence: US)
  Receive Date: 20241210
  Receipt Date: 20250304
  Transmission Date: 20250408
  Serious: No
  Sender: BRISTOL-MYERS SQUIBB COMPANY
  Company Number: US-BRISTOL-MYERS SQUIBB COMPANY-2024-189637

PATIENT
  Age: 74 Year
  Sex: Male

DRUGS (2)
  1. REVLIMID [Suspect]
     Active Substance: LENALIDOMIDE
     Indication: Plasma cell myeloma
     Route: 048
  2. REVLIMID [Suspect]
     Active Substance: LENALIDOMIDE
     Route: 048

REACTIONS (7)
  - Treatment noncompliance [Unknown]
  - Immunoglobulins increased [Recovered/Resolved]
  - Product dose omission issue [Unknown]
  - Anxiety [Unknown]
  - Nervousness [Not Recovered/Not Resolved]
  - Dehydration [Not Recovered/Not Resolved]
  - Eye disorder [Not Recovered/Not Resolved]
